FAERS Safety Report 13034629 (Version 1)
Quarter: 2016Q4

REPORT INFORMATION
  Report Type: Spontaneous
  Country: US (occurrence: US)
  Receive Date: 20161216
  Receipt Date: 20161216
  Transmission Date: 20170207
  Serious: No
  Sender: FDA-Public Use
  Company Number: US-BAUSCH-BL-2016-002763

PATIENT
  Age: 69 Year
  Sex: Male

DRUGS (1)
  1. TIMOLOL GEL FORMING SOLUTION [Suspect]
     Active Substance: TIMOLOL
     Indication: GLAUCOMA
     Dosage: AS DIRECTED
     Route: 061
     Dates: start: 20160128, end: 20160128

REACTIONS (2)
  - Product contamination [Recovered/Resolved]
  - Removal of foreign body from eye [Recovered/Resolved]

NARRATIVE: CASE EVENT DATE: 201601
